FAERS Safety Report 16292135 (Version 1)
Quarter: 2019Q2

REPORT INFORMATION
  Report Type: Spontaneous
  Country: US (occurrence: US)
  Receive Date: 20190509
  Receipt Date: 20190509
  Transmission Date: 20190711
  Serious: No
  Sender: FDA-Public Use
  Company Number: US-LANNETT COMPANY, INC.-US-2019LAN000204

PATIENT

DRUGS (1)
  1. ATORVASTATIN CALCIUM. [Suspect]
     Active Substance: ATORVASTATIN CALCIUM
     Indication: PRODUCT USED FOR UNKNOWN INDICATION
     Dosage: 10 MG, QOD
     Route: 065

REACTIONS (7)
  - Nausea [Unknown]
  - Feeling abnormal [Unknown]
  - Tremor [Unknown]
  - Amnesia [Unknown]
  - Personality change [Unknown]
  - Off label use [Unknown]
  - Confusional state [Unknown]
